FAERS Safety Report 14411133 (Version 1)
Quarter: 2018Q1

REPORT INFORMATION
  Report Type: Spontaneous
  Country: US (occurrence: US)
  Receive Date: 20180117
  Receipt Date: 20180117
  Transmission Date: 20180509
  Serious: No
  Sender: FDA-Public Use
  Company Number: None

PATIENT
  Age: 29 Year
  Sex: Female

DRUGS (1)
  1. STELARA [Suspect]
     Active Substance: USTEKINUMAB
     Indication: PSORIASIS
     Dosage: 45MG EVERY 12 WEEKS SUBCUTANEOUS
     Route: 058
     Dates: start: 20170721

REACTIONS (3)
  - Candida infection [None]
  - Aphthous ulcer [None]
  - Infection [None]

NARRATIVE: CASE EVENT DATE: 20180102
